FAERS Safety Report 5228443-7 (Version None)
Quarter: 2007Q1

REPORT INFORMATION
  Report Type: 
  Country: None (occurrence: None)
  Receive Date: 20070205
  Receipt Date: 20070130
  Transmission Date: 20070707
  Serious: Yes (Hospitalization, Other)
  Sender: FDA-Public Use
  Company Number: US-BRISTOL-MYERS SQUIBB COMPANY-13468251

PATIENT
  Age: 61 Year
  Sex: Female

DRUGS (5)
  1. CETUXIMAB [Suspect]
     Indication: LUNG CANCER METASTATIC
     Route: 042
     Dates: start: 20060728, end: 20070119
  2. CARBOPLATIN [Suspect]
     Indication: LUNG CANCER METASTATIC
     Route: 042
     Dates: start: 20060728, end: 20060728
  3. DOCETAXEL [Suspect]
     Indication: LUNG CANCER METASTATIC
     Route: 042
     Dates: start: 20060728, end: 20060728
  4. OXYCONTIN [Concomitant]
     Dates: start: 20060401
  5. MARINOL [Concomitant]
     Dates: start: 20060802

REACTIONS (4)
  - BACTERAEMIA [None]
  - DEHYDRATION [None]
  - HYPONATRAEMIA [None]
  - THROMBOCYTOPENIA [None]
